FAERS Safety Report 7435971-2 (Version None)
Quarter: 2011Q2

REPORT INFORMATION
  Report Type: 
  Country: None (occurrence: None)
  Receive Date: 20110425
  Receipt Date: 20110412
  Transmission Date: 20111010
  Serious: Yes (Death, Other)
  Sender: FDA-Public Use
  Company Number: US-CELGENEUS-163-21880-11010982

PATIENT
  Sex: Female

DRUGS (3)
  1. REVLIMID [Suspect]
     Dosage: 5 MILLIGRAM
     Route: 048
  2. REVLIMID [Suspect]
     Indication: MYELODYSPLASTIC SYNDROME
     Dosage: 10 MILLIGRAM
     Route: 048
     Dates: start: 20101207
  3. REVLIMID [Suspect]
     Dosage: 2.5 MILLIGRAM
     Route: 048
     Dates: end: 20110123

REACTIONS (3)
  - RESPIRATORY FAILURE [None]
  - MYELODYSPLASTIC SYNDROME [None]
  - INFECTION [None]
